FAERS Safety Report 10358418 (Version 1)
Quarter: 2014Q3

REPORT INFORMATION
  Report Type: Report from Study
  Country: CA (occurrence: CA)
  Receive Date: 20140801
  Receipt Date: 20140801
  Transmission Date: 20150326
  Serious: Yes (Hospitalization)
  Sender: FDA-Public Use
  Company Number: CA-ABBVIE-14P-028-1265836-00

PATIENT
  Age: 86 Year
  Sex: Male
  Weight: 82.63 kg

DRUGS (1)
  1. LUPRON DEPOT [Suspect]
     Active Substance: LEUPROLIDE ACETATE
     Indication: PROSTATE CANCER
     Route: 030
     Dates: start: 20140130

REACTIONS (2)
  - Respiratory tract infection [Unknown]
  - Syncope [Unknown]

NARRATIVE: CASE EVENT DATE: 201406
